FAERS Safety Report 17271991 (Version 3)
Quarter: 2020Q1

REPORT INFORMATION
  Report Type: Spontaneous
  Country: TR (occurrence: TR)
  Receive Date: 20200115
  Receipt Date: 20200219
  Transmission Date: 20200409
  Serious: Yes (Other)
  Sender: FDA-Public Use
  Company Number: TR-PFIZER INC-2019561234

PATIENT
  Age: 69 Year
  Sex: Male

DRUGS (6)
  1. TENOVIRAL [Concomitant]
     Active Substance: TENOFOVIR DISOPROXIL
     Indication: INFECTION PROPHYLAXIS
     Dosage: 245 MG, 1X/DAY
     Route: 048
     Dates: start: 201910
  2. NEURONTIN [Suspect]
     Active Substance: GABAPENTIN
     Dosage: 300 MG, 1X/DAY
     Route: 048
     Dates: start: 20191228, end: 20191228
  3. ACLOVIR [Concomitant]
     Indication: INFECTION PROPHYLAXIS
     Dosage: 600 MG, 3X/DAY
     Route: 048
     Dates: start: 201905
  4. NEXIUM I.V. [Concomitant]
     Active Substance: ESOMEPRAZOLE SODIUM
     Indication: GASTROINTESTINAL DISORDER PROPHYLAXIS
     Dosage: 40 MG, 1X/DAY MORNING
     Route: 048
     Dates: start: 201905
  5. NEURONTIN [Suspect]
     Active Substance: GABAPENTIN
     Indication: ALLOGENIC STEM CELL TRANSPLANTATION
     Dosage: 300 MG, 1X/DAY
     Route: 048
     Dates: start: 20191226
  6. NEURONTIN [Suspect]
     Active Substance: GABAPENTIN
     Indication: NEUROLOGICAL SYMPTOM
     Dosage: 300 MG, 2X/DAY
     Route: 048
     Dates: start: 20191227

REACTIONS (6)
  - Off label use [Unknown]
  - Haemorrhage [Recovered/Resolved]
  - Product use in unapproved indication [Unknown]
  - Urticaria [Recovered/Resolved]
  - Pruritus [Recovered/Resolved]
  - Haemorrhagic diathesis [Unknown]

NARRATIVE: CASE EVENT DATE: 20191226
